FAERS Safety Report 12522199 (Version 2)
Quarter: 2016Q4

REPORT INFORMATION
  Report Type: Spontaneous
  Country: JP (occurrence: JP)
  Receive Date: 20160701
  Receipt Date: 20161017
  Transmission Date: 20170207
  Serious: Yes (Hospitalization)
  Sender: FDA-Public Use
  Company Number: JP-CELGENEUS-JPN-2016065565

PATIENT
  Age: 71 Year
  Sex: Male

DRUGS (2)
  1. POMALYST [Suspect]
     Active Substance: POMALIDOMIDE
     Indication: POEMS SYNDROME
     Dosage: 4 MILLIGRAM
     Route: 048
     Dates: start: 20160530, end: 201606
  2. LENADEX [Suspect]
     Active Substance: DEXAMETHASONE ACETATE
     Indication: POEMS SYNDROME
     Route: 048

REACTIONS (2)
  - Neutrophil count decreased [Recovered/Resolved]
  - Infection [Recovered/Resolved]

NARRATIVE: CASE EVENT DATE: 201606
